FAERS Safety Report 4653738-5 (Version None)
Quarter: 2005Q2

REPORT INFORMATION
  Report Type: 
  Country: None (occurrence: None)
  Receive Date: 20050504
  Receipt Date: 20050427
  Transmission Date: 20051028
  Serious: Yes (Hospitalization)
  Sender: FDA-Public Use
  Company Number: HQWYE422428APR05

PATIENT
  Age: 58 Year
  Sex: Female
  Weight: 69.1 kg

DRUGS (1)
  1. CYCLOSPORINE [Suspect]
     Indication: PROPHYLAXIS AGAINST TRANSPLANT REJECTION
     Dosage: 75 MG 1X PER 12 HR, ORAL
     Route: 048
     Dates: start: 20021216

REACTIONS (9)
  - BREAST CANCER METASTATIC [None]
  - DYSPNOEA EXACERBATED [None]
  - ELECTROCARDIOGRAM CHANGE [None]
  - GROIN PAIN [None]
  - HEPATIC LESION [None]
  - PATHOLOGICAL FRACTURE [None]
  - PYREXIA [None]
  - RIB FRACTURE [None]
  - SPINAL DISORDER [None]
